FAERS Safety Report 24744865 (Version 1)
Quarter: 2024Q4

REPORT INFORMATION
  Report Type: Spontaneous
  Country: US (occurrence: None)
  Receive Date: 20241214
  Receipt Date: 20241214
  Transmission Date: 20250114
  Serious: Yes (Hospitalization, Disabling)
  Sender: Public
  Company Number: None

PATIENT
  Age: 56 Year
  Sex: Female
  Weight: 65 kg

DRUGS (2)
  1. ESTROGENS\PROGESTERONE [Suspect]
     Active Substance: ESTROGENS\PROGESTERONE
     Indication: Hormone replacement therapy
     Dates: start: 20231115
  2. PREDNISONE [Suspect]
     Active Substance: PREDNISONE

REACTIONS (1)
  - Alopecia areata [None]

NARRATIVE: CASE EVENT DATE: 20231203
